FAERS Safety Report 8165717-4 (Version None)
Quarter: 2012Q1

REPORT INFORMATION
  Report Type: 
  Country: None (occurrence: None)
  Receive Date: 20120227
  Receipt Date: 20110207
  Transmission Date: 20120608
  Serious: No
  Sender: FDA-Public Use
  Company Number: US-MYLANLABS-2011S1000378

PATIENT
  Age: 16 Year
  Sex: Male

DRUGS (4)
  1. AMNESTEEM [Suspect]
     Route: 048
  2. AMNESTEEM [Suspect]
     Indication: ACNE CYSTIC
     Route: 048
     Dates: start: 20100625, end: 20101201
  3. AMNESTEEM [Suspect]
     Indication: ACNE
     Route: 048
     Dates: start: 20100625, end: 20101201
  4. AMNESTEEM [Suspect]
     Route: 048

REACTIONS (4)
  - AGGRESSION [None]
  - IRRITABILITY [None]
  - MOOD ALTERED [None]
  - DEPRESSIVE SYMPTOM [None]
